FAERS Safety Report 7225513-9 (Version None)
Quarter: 2011Q1

REPORT INFORMATION
  Report Type: 
  Country: None (occurrence: None)
  Receive Date: 20110113
  Receipt Date: 20110104
  Transmission Date: 20110831
  Serious: Yes (Hospitalization)
  Sender: FDA-Public Use
  Company Number: US-BAXTER-2010BH031033

PATIENT

DRUGS (2)
  1. DIANEAL [Suspect]
     Indication: PERITONEAL DIALYSIS
     Route: 033
  2. THYROID MEDICATION [Suspect]
     Indication: THYROID DISORDER
     Route: 065

REACTIONS (2)
  - MALAISE [None]
  - THYROTOXIC CRISIS [None]
